FAERS Safety Report 15468513 (Version 3)
Quarter: 2018Q4

REPORT INFORMATION
  Report Type: Report from Study
  Country: US (occurrence: US)
  Receive Date: 20181005
  Receipt Date: 20181204
  Transmission Date: 20190204
  Serious: No
  Sender: FDA-Public Use
  Company Number: US-SA-2018SA272034

PATIENT
  Age: 54 Year
  Sex: Male
  Weight: 70.3 kg

DRUGS (4)
  1. DUPILUMAB [Suspect]
     Active Substance: DUPILUMAB
     Indication: DERMATITIS ATOPIC
     Dosage: 600 MG, 1X
     Route: 058
     Dates: start: 201808, end: 201808
  2. MONTELUKAST [Concomitant]
     Active Substance: MONTELUKAST SODIUM
     Indication: HYPERSENSITIVITY
     Dosage: 10 MG, UNK
     Route: 065
     Dates: start: 201609
  3. DUPILUMAB [Suspect]
     Active Substance: DUPILUMAB
     Dosage: 300 MG, QOW
     Route: 058
     Dates: start: 20180822, end: 20180919
  4. VALACYCLOVIR [VALACICLOVIR HYDROCHLORIDE] [Concomitant]
     Indication: HERPES VIRUS INFECTION
     Dosage: 1 G, BID
     Route: 065
     Dates: start: 201701

REACTIONS (5)
  - Conjunctivitis [Recovering/Resolving]
  - Eye swelling [Recovering/Resolving]
  - Ocular hyperaemia [Recovering/Resolving]
  - Eye pain [Recovering/Resolving]
  - Eye allergy [Recovering/Resolving]

NARRATIVE: CASE EVENT DATE: 201808
